FAERS Safety Report 5043392-5 (Version None)
Quarter: 2006Q3

REPORT INFORMATION
  Report Type: 
  Country: None (occurrence: None)
  Receive Date: 20060705
  Receipt Date: 20060628
  Transmission Date: 20061208
  Serious: Yes (Disabling, Other)
  Sender: FDA-Public Use
  Company Number: US-MERCK-0606USA05345

PATIENT
  Age: 87 Year
  Sex: Female

DRUGS (4)
  1. VYTORIN [Suspect]
     Indication: HYPERLIPIDAEMIA
     Route: 048
     Dates: end: 20060601
  2. ASPIRIN [Concomitant]
     Route: 065
  3. SINEMET [Concomitant]
     Route: 048
  4. TOPROL-XL [Concomitant]
     Route: 065

REACTIONS (3)
  - DISCOMFORT [None]
  - MUSCULOSKELETAL DISORDER [None]
  - SLEEP DISORDER [None]
